FAERS Safety Report 20916817 (Version 1)
Quarter: 2022Q2

REPORT INFORMATION
  Report Type: Spontaneous
  Country: US (occurrence: US)
  Receive Date: 20220605
  Receipt Date: 20220605
  Transmission Date: 20220720
  Serious: Yes (Hospitalization)
  Sender: FDA-Public Use
  Company Number: US-PRINSTON PHARMACEUTICAL INC.-2022PRN00192

PATIENT
  Sex: Female

DRUGS (10)
  1. CAPTOPRIL [Suspect]
     Active Substance: CAPTOPRIL
     Dosage: UNK
  2. ALBUTEROL [Suspect]
     Active Substance: ALBUTEROL
  3. AMLODIPINE [Suspect]
     Active Substance: AMLODIPINE BESYLATE
     Dosage: UNK
     Dates: end: 2020
  4. AMLODIPINE [Suspect]
     Active Substance: AMLODIPINE BESYLATE
     Dosage: ^HALF A DAY^
     Dates: start: 2020
  5. METOPROLOL [Suspect]
     Active Substance: METOPROLOL
     Dosage: 50 MG
     Dates: end: 2020
  6. METOPROLOL [Suspect]
     Active Substance: METOPROLOL
     Dosage: 100 MG, 1X/DAY
     Dates: start: 2020
  7. ASPIRIN [Concomitant]
     Active Substance: ASPIRIN
  8. INCRUSE ELLIPTA [Concomitant]
     Active Substance: UMECLIDINIUM BROMIDE
  9. ADVAIR HFA [Concomitant]
     Active Substance: FLUTICASONE PROPIONATE\SALMETEROL XINAFOATE
  10. ZOLOFT [Concomitant]
     Active Substance: SERTRALINE HYDROCHLORIDE

REACTIONS (2)
  - Atrial fibrillation [Unknown]
  - Heart rate irregular [Unknown]

NARRATIVE: CASE EVENT DATE: 20200101
